FAERS Safety Report 5833854-2 (Version None)
Quarter: 2008Q3

REPORT INFORMATION
  Report Type: 
  Country: None (occurrence: None)
  Receive Date: 20080731
  Receipt Date: 20080724
  Transmission Date: 20090109
  Serious: Yes (Other)
  Sender: FDA-Public Use
  Company Number: CC08-433

PATIENT
  Sex: Male

DRUGS (1)
  1. PRIMATENE MIST [Suspect]
     Indication: ASTHMA
     Dosage: 2 ACUTATIONS PRN

REACTIONS (3)
  - DRUG INEFFECTIVE [None]
  - PHARMACEUTICAL PRODUCT COMPLAINT [None]
  - POOR QUALITY DRUG ADMINISTERED [None]
